FAERS Safety Report 4363461-2 (Version None)
Quarter: 2004Q2

REPORT INFORMATION
  Report Type: 
  Country: None (occurrence: None)
  Receive Date: 20040524
  Receipt Date: 20040512
  Transmission Date: 20050107
  Serious: Yes (Other)
  Sender: FDA-Public Use
  Company Number: JP-BRISTOL-MYERS SQUIBB COMPANY-12586707

PATIENT
  Age: 4 Year
  Sex: Male

DRUGS (3)
  1. PARAPLATIN [Suspect]
     Indication: RHABDOMYOSARCOMA
     Route: 042
  2. ETOPOSIDE [Suspect]
     Indication: RHABDOMYOSARCOMA
     Route: 042
  3. IFOSFAMIDE [Suspect]
     Indication: RHABDOMYOSARCOMA

REACTIONS (2)
  - ACUTE PROMYELOCYTIC LEUKAEMIA [None]
  - LEUKAEMIA [None]
